FAERS Safety Report 8248582-6 (Version None)
Quarter: 2012Q1

REPORT INFORMATION
  Report Type: 
  Country: None (occurrence: None)
  Receive Date: 20120330
  Receipt Date: 20120326
  Transmission Date: 20120608
  Serious: Yes (Other)
  Sender: FDA-Public Use
  Company Number: CA-ASTRAZENECA-2012SE05538

PATIENT
  Age: 82 Year
  Sex: Male

DRUGS (10)
  1. MULTI-VITAMINS [Concomitant]
  2. HYDROCHLOROTHIAZIDE [Concomitant]
     Dates: start: 20110101
  3. VIT C [Concomitant]
  4. VALSARTAN [Concomitant]
     Dates: start: 20110101
  5. BISOPROLOL FUMARATE [Concomitant]
  6. CALCIUM CARBONATE [Concomitant]
  7. VITAMIN D [Concomitant]
  8. PULMICORT [Suspect]
     Route: 055
     Dates: start: 20040101
  9. PULMICORT [Suspect]
     Route: 055
  10. VERAPAMIL [Concomitant]
     Dates: start: 20101101

REACTIONS (3)
  - INCREASED UPPER AIRWAY SECRETION [None]
  - DYSPNOEA [None]
  - DRUG INEFFECTIVE [None]
